FAERS Safety Report 6787718-0 (Version None)
Quarter: 2010Q2

REPORT INFORMATION
  Report Type: 
  Country: None (occurrence: None)
  Receive Date: 20100623
  Receipt Date: 20070730
  Transmission Date: 20101027
  Serious: No
  Sender: FDA-Public Use
  Company Number: US-PFIZER INC-2007060570

PATIENT
  Sex: Female
  Weight: 105.9 kg

DRUGS (4)
  1. GLYNASE [Suspect]
     Indication: TYPE 2 DIABETES MELLITUS
     Route: 048
     Dates: start: 20070601
  2. SYNTHROID [Concomitant]
  3. ALTACE [Concomitant]
  4. VALSARTAN [Concomitant]

REACTIONS (1)
  - DRUG INEFFECTIVE [None]
